FAERS Safety Report 17134291 (Version 2)
Quarter: 2020Q4

REPORT INFORMATION
  Report Type: Spontaneous
  Country: JP (occurrence: JP)
  Receive Date: 20191210
  Receipt Date: 20201117
  Transmission Date: 20210113
  Serious: Yes (Hospitalization, Other)
  Sender: FDA-Public Use
  Company Number: JP-MYLANLABS-2019M1119520

PATIENT
  Age: 51 Year
  Sex: Male
  Weight: 62.7 kg

DRUGS (38)
  1. OLMESARTAN MEDOXOMIL. [Suspect]
     Active Substance: OLMESARTAN MEDOXOMIL
     Dosage: 40 MILLIGRAM, QD
     Route: 048
     Dates: start: 20200716, end: 20200718
  2. CARDENALIN [Suspect]
     Active Substance: DOXAZOSIN MESYLATE
     Indication: HYPERTENSION
     Dosage: UNK
     Route: 048
     Dates: start: 20190814, end: 20191009
  3. CARDENALIN [Suspect]
     Active Substance: DOXAZOSIN MESYLATE
     Dosage: 4 MILLIGRAM, QD
     Route: 048
     Dates: start: 20191211
  4. CARVEDILOL. [Suspect]
     Active Substance: CARVEDILOL
     Indication: HYPERTENSION
     Dosage: 10 MILLIGRAM, BID
     Route: 048
     Dates: end: 20200711
  5. SPIRONOLACTONE. [Suspect]
     Active Substance: SPIRONOLACTONE
     Dosage: 25 MILLIGRAM, QD
     Route: 048
     Dates: start: 20200713, end: 20200718
  6. WYPAX [Concomitant]
     Active Substance: LORAZEPAM
     Indication: PRODUCT USED FOR UNKNOWN INDICATION
     Dosage: UNK
     Route: 048
  7. PROPOFOL. [Suspect]
     Active Substance: PROPOFOL
     Indication: SEDATIVE THERAPY
     Dosage: UNK
     Route: 042
     Dates: start: 20191113, end: 20191113
  8. PREDNISOLONE. [Suspect]
     Active Substance: PREDNISOLONE
     Dosage: 10 MILLIGRAM, QD
     Route: 065
     Dates: start: 20200718, end: 20200719
  9. VALACICLOVIR [Suspect]
     Active Substance: VALACYCLOVIR HYDROCHLORIDE
     Indication: PRODUCT USED FOR UNKNOWN INDICATION
     Dosage: 1000 MILLIGRAM, QD
     Route: 065
     Dates: start: 20200708, end: 20200713
  10. CARDENALIN [Suspect]
     Active Substance: DOXAZOSIN MESYLATE
     Dosage: UNK
     Route: 048
     Dates: end: 20191114
  11. ATARAX-P                           /00058402/ [Suspect]
     Active Substance: HYDROXYZINE HYDROCHLORIDE
     Indication: SEDATIVE THERAPY
     Dosage: UNK
     Route: 065
     Dates: start: 20191113, end: 20191113
  12. MAGMITT [Concomitant]
     Active Substance: MAGNESIUM OXIDE
     Indication: PRODUCT USED FOR UNKNOWN INDICATION
     Dosage: UNK
     Route: 048
  13. DILTIAZEM. [Concomitant]
     Active Substance: DILTIAZEM
     Indication: PRODUCT USED FOR UNKNOWN INDICATION
     Dosage: UNK
     Route: 048
     Dates: start: 20200513
  14. OLMESARTAN MEDOXOMIL. [Suspect]
     Active Substance: OLMESARTAN MEDOXOMIL
     Indication: HYPERTENSION
     Dosage: 40 MILLIGRAM, QD
     Route: 048
     Dates: end: 20200711
  15. CARVEDILOL. [Suspect]
     Active Substance: CARVEDILOL
     Dosage: 10 MILLIGRAM, BID
     Route: 048
     Dates: start: 20200727
  16. HYDROXYZINE HYDROCHLORIDE. [Suspect]
     Active Substance: HYDROXYZINE HYDROCHLORIDE
     Indication: PRODUCT USED FOR UNKNOWN INDICATION
     Dosage: UNK
     Route: 065
     Dates: start: 20191113
  17. LOVASTATIN. [Concomitant]
     Active Substance: LOVASTATIN
     Indication: PRODUCT USED FOR UNKNOWN INDICATION
     Dosage: 5 MILLIGRAM, QD
     Route: 048
  18. CANDESARTAN. [Suspect]
     Active Substance: CANDESARTAN
     Indication: HYPERTENSION
     Dosage: 4 MILLIGRAM, QD
     Route: 048
     Dates: start: 20191010, end: 20191114
  19. PREDNISOLONE. [Suspect]
     Active Substance: PREDNISOLONE
     Indication: PRODUCT USED FOR UNKNOWN INDICATION
     Dosage: 30 MILLIGRAM, QD
     Route: 065
     Dates: start: 20200709, end: 20200715
  20. CARVEDILOL. [Suspect]
     Active Substance: CARVEDILOL
     Dosage: 10 MILLIGRAM, QD
     Route: 048
     Dates: start: 20200713, end: 20200718
  21. NIFEDIPINE. [Suspect]
     Active Substance: NIFEDIPINE
     Dosage: 40 MILLIGRAM, BID
     Route: 048
     Dates: start: 20200727
  22. MECOBALAMIN [Suspect]
     Active Substance: METHYLCOBALAMIN
     Indication: PRODUCT USED FOR UNKNOWN INDICATION
     Dosage: 1500 MILLIGRAM, QD
     Route: 065
     Dates: start: 20200708
  23. SPIRONOLACTONE. [Suspect]
     Active Substance: SPIRONOLACTONE
     Indication: HYPERTENSION
     Dosage: 25 MILLIGRAM, BID
     Route: 048
     Dates: end: 20200711
  24. SPIRONOLACTONE. [Suspect]
     Active Substance: SPIRONOLACTONE
     Dosage: 25 MILLIGRAM, BID
     Route: 048
     Dates: start: 20200727
  25. NATRIX [Suspect]
     Active Substance: INDAPAMIDE
     Indication: HYPERTENSION
     Dosage: 1 MILLIGRAM, QD
     Route: 048
     Dates: end: 20200711
  26. NATRIX [Suspect]
     Active Substance: INDAPAMIDE
     Dosage: 1 MILLIGRAM, QD
     Route: 048
     Dates: start: 20200726
  27. NIFEDIPINE. [Suspect]
     Active Substance: NIFEDIPINE
     Indication: HYPERTENSION
     Dosage: 40 MILLIGRAM, BID
     Route: 048
     Dates: end: 20200711
  28. NIFEDIPINE. [Suspect]
     Active Substance: NIFEDIPINE
     Dosage: 40 MILLIGRAM, BID
     Route: 048
     Dates: start: 20200716, end: 20200718
  29. OLMESARTAN MEDOXOMIL. [Suspect]
     Active Substance: OLMESARTAN MEDOXOMIL
     Dosage: 40 MILLIGRAM, QD
     Route: 048
     Dates: start: 20200727
  30. PENTAZOCINE [Suspect]
     Active Substance: PENTAZOCINE
     Indication: PRODUCT USED FOR UNKNOWN INDICATION
     Dosage: UNK
     Route: 065
     Dates: start: 20191113
  31. PREDNISOLONE. [Suspect]
     Active Substance: PREDNISOLONE
     Dosage: 15 MILLIGRAM, QD
     Route: 065
     Dates: start: 20200716, end: 20200717
  32. PREDNISOLONE. [Suspect]
     Active Substance: PREDNISOLONE
     Dosage: 5 MILLIGRAM, QD
     Route: 065
     Dates: start: 20200720, end: 20200721
  33. RIVOTRIL [Suspect]
     Active Substance: CLONAZEPAM
     Indication: PRODUCT USED FOR UNKNOWN INDICATION
     Dosage: 2 MILLIGRAM, QD
     Route: 048
  34. SOSEGON                            /00052101/ [Suspect]
     Active Substance: PENTAZOCINE
     Indication: SEDATIVE THERAPY
     Dosage: UNK
     Route: 065
     Dates: start: 20191113, end: 20191113
  35. TAKECAB [Concomitant]
     Active Substance: VONOPRAZAN FUMARATE
     Indication: PRODUCT USED FOR UNKNOWN INDICATION
     Dosage: UNK
     Route: 048
  36. MEILAX [Concomitant]
     Active Substance: ETHYL LOFLAZEPATE
     Indication: PRODUCT USED FOR UNKNOWN INDICATION
     Dosage: UNK
     Route: 048
     Dates: start: 202005
  37. NATRIX [Suspect]
     Active Substance: INDAPAMIDE
     Dosage: 1 MILLIGRAM, QD
     Route: 048
     Dates: start: 20200715, end: 20200718
  38. REBAMIPIDE [Concomitant]
     Active Substance: REBAMIPIDE
     Indication: PRODUCT USED FOR UNKNOWN INDICATION
     Dosage: 100 MILLIGRAM, QD
     Route: 048

REACTIONS (4)
  - Facial paralysis [Recovering/Resolving]
  - Loss of consciousness [Unknown]
  - Bradycardia [Unknown]
  - Hypotension [Recovered/Resolved]

NARRATIVE: CASE EVENT DATE: 20191113
